FAERS Safety Report 9408724 (Version 1)
Quarter: 2013Q3

REPORT INFORMATION
  Report Type: Spontaneous
  Country: US (occurrence: US)
  Receive Date: 20130718
  Receipt Date: 20130718
  Transmission Date: 20140515
  Serious: No
  Sender: FDA-Public Use
  Company Number: US-009507513-1307USA005195

PATIENT
  Age: 88 Year
  Sex: Male

DRUGS (4)
  1. DULERA [Suspect]
     Indication: ASTHMA
     Dosage: 2 PUFFS TWICE A DAY
     Route: 055
     Dates: start: 201304
  2. PLAVIX [Concomitant]
  3. ASPIRIN [Concomitant]
  4. METOPROLOL [Concomitant]

REACTIONS (1)
  - Rash [Not Recovered/Not Resolved]
